FAERS Safety Report 9437807 (Version 2)
Quarter: 2014Q3

REPORT INFORMATION
  Report Type: Spontaneous
  Country: US (occurrence: US)
  Receive Date: 20130802
  Receipt Date: 20140723
  Transmission Date: 20150326
  Serious: No
  Sender: FDA-Public Use
  Company Number: US-BRISTOL-MYERS SQUIBB COMPANY-17463621

PATIENT
  Age: 63 Year
  Sex: Female

DRUGS (8)
  1. MVI [Concomitant]
     Active Substance: VITAMINS
  2. MAGNESIUM OXIDE. [Concomitant]
     Active Substance: MAGNESIUM OXIDE
  3. COUMADIN [Suspect]
     Active Substance: WARFARIN SODIUM
     Indication: MITRAL VALVE REPLACEMENT
     Dosage: COUMADIN4MG, 1 AND HALF TABS, ONE DAY A WEEK, CHANGED TO 2 TABS/DAY.?8MG 1 DAY/WK,6MG QD
     Route: 048
     Dates: start: 20130221, end: 20130307
  4. PREMARIN [Concomitant]
     Active Substance: ESTROGENS, CONJUGATED
  5. OSCAL D [Concomitant]
     Active Substance: CALCIUM CARBONATE\CHOLECALCIFEROL
  6. COREG [Concomitant]
     Active Substance: CARVEDILOL
  7. SPIRONOLACTONE. [Concomitant]
     Active Substance: SPIRONOLACTONE
  8. KONSYL [Concomitant]

REACTIONS (1)
  - International normalised ratio decreased [Unknown]

NARRATIVE: CASE EVENT DATE: 20130221
